FAERS Safety Report 25416844 (Version 2)
Quarter: 2025Q2

REPORT INFORMATION
  Report Type: Other
  Country: DE (occurrence: DE)
  Receive Date: 20250610
  Receipt Date: 20250621
  Transmission Date: 20250717
  Serious: Yes (Congenital Anomaly, Other)
  Sender: MACLEODS
  Company Number: None

PATIENT

DRUGS (4)
  1. LACOSAMIDE [Suspect]
     Active Substance: LACOSAMIDE
     Indication: Product used for unknown indication
     Route: 064
  2. OXCARBAZEPINE [Suspect]
     Active Substance: OXCARBAZEPINE
     Indication: Product used for unknown indication
     Route: 064
  3. LEVETIRACETAM [Suspect]
     Active Substance: LEVETIRACETAM
     Indication: Product used for unknown indication
     Route: 064
  4. CLOBAZAM [Suspect]
     Active Substance: CLOBAZAM
     Indication: Product used for unknown indication
     Route: 064

REACTIONS (4)
  - Congenital hydronephrosis [Unknown]
  - Cryptorchism [Unknown]
  - Premature baby [Unknown]
  - Foetal exposure during pregnancy [Unknown]
